FAERS Safety Report 17069911 (Version 1)
Quarter: 2019Q4

REPORT INFORMATION
  Report Type: Spontaneous
  Country: ES (occurrence: ES)
  Receive Date: 20191125
  Receipt Date: 20191125
  Transmission Date: 20200122
  Serious: Yes (Life-Threatening, Hospitalization, Other)
  Sender: FDA-Public Use
  Company Number: ES-JNJFOC-20191119013

PATIENT
  Age: 59 Year
  Sex: Female

DRUGS (2)
  1. CALCIUM DOBESILATE [Concomitant]
     Active Substance: CALCIUM DOBESILATE
     Indication: PRODUCT USED FOR UNKNOWN INDICATION
     Route: 065
  2. IBUPROFEN. [Suspect]
     Active Substance: IBUPROFEN
     Indication: ARTHRALGIA
     Dosage: IBUPROFEN: 600 MG
     Route: 065

REACTIONS (10)
  - Hyponatraemia [Recovered/Resolved]
  - Blood bilirubin increased [Recovered/Resolved]
  - Renal impairment [Recovered/Resolved]
  - Ascites [Recovered/Resolved]
  - Fatigue [Recovered/Resolved]
  - Jaundice [Recovered/Resolved]
  - Liver injury [Recovered/Resolved]
  - Choluria [Recovered/Resolved]
  - Alanine aminotransferase increased [Recovered/Resolved]
  - Prothrombin time shortened [Recovered/Resolved]
